FAERS Safety Report 12507379 (Version 1)
Quarter: 2016Q2

REPORT INFORMATION
  Report Type: Report from Study
  Country: KR (occurrence: KR)
  Receive Date: 20160629
  Receipt Date: 20160629
  Transmission Date: 20160815
  Serious: Yes (Hospitalization)
  Sender: FDA-Public Use
  Company Number: KR-ROCHE-1782817

PATIENT
  Age: 43 Year
  Sex: Female
  Weight: 55.1 kg

DRUGS (14)
  1. PERTUZUMAB [Suspect]
     Active Substance: PERTUZUMAB
     Indication: BREAST CANCER
     Route: 042
     Dates: start: 20160218
  2. DOCETAXEL. [Suspect]
     Active Substance: DOCETAXEL
     Indication: BREAST CANCER
     Route: 042
     Dates: start: 20160218
  3. PENIRAMIN [Concomitant]
     Indication: URTICARIA
     Route: 042
     Dates: start: 20160218
  4. TANTUM [Concomitant]
     Active Substance: BENZYDAMINE HYDROCHLORIDE
     Route: 065
     Dates: start: 20160411, end: 20160502
  5. KYTRIL [Concomitant]
     Active Substance: GRANISETRON HYDROCHLORIDE
     Indication: NAUSEA
     Route: 048
     Dates: start: 20160218
  6. NEOPLATIN (SOUTH KOREA) [Concomitant]
     Indication: BREAST CANCER
     Route: 042
     Dates: start: 20160219
  7. TANTUM [Concomitant]
     Active Substance: BENZYDAMINE HYDROCHLORIDE
     Indication: STOMATITIS
     Route: 065
     Dates: start: 20160218
  8. TRASTUZUMAB [Suspect]
     Active Substance: TRASTUZUMAB
     Indication: BREAST CANCER
     Route: 042
     Dates: start: 20160218
  9. NEURONTIN (SOUTH KOREA) [Concomitant]
     Indication: NEUROPATHY PERIPHERAL
     Route: 048
     Dates: start: 20160218
  10. CURAN [Concomitant]
     Active Substance: RANITIDINE HYDROCHLORIDE
     Indication: GASTRITIS
     Route: 048
     Dates: start: 20160219
  11. PERTUZUMAB [Suspect]
     Active Substance: PERTUZUMAB
     Dosage: 03/JUN/2016: RECENT DOSE RECEIVED
     Route: 042
     Dates: start: 20160310
  12. DEXAMETHASONE. [Concomitant]
     Active Substance: DEXAMETHASONE
     Indication: NEUROPATHY PERIPHERAL
     Route: 042
     Dates: start: 20160218
  13. SUSPEN ER [Concomitant]
     Indication: HEADACHE
     Route: 048
     Dates: start: 20160218
  14. NASERON [Concomitant]
     Indication: NAUSEA
     Route: 042
     Dates: start: 20160219

REACTIONS (5)
  - Diarrhoea [Recovered/Resolved]
  - Stomatitis [Recovering/Resolving]
  - Gastroenteritis [Recovered/Resolved]
  - Hepatic enzyme increased [Recovered/Resolved]
  - Neutropenia [Recovered/Resolved]

NARRATIVE: CASE EVENT DATE: 20160226
